FAERS Safety Report 4992428-6 (Version None)
Quarter: 2006Q2

REPORT INFORMATION
  Report Type: 
  Country: None (occurrence: None)
  Receive Date: 20060502
  Receipt Date: 20060418
  Transmission Date: 20061013
  Serious: Yes (Other)
  Sender: FDA-Public Use
  Company Number: 02100-JPN-06-0034

PATIENT
  Age: 78 Year
  Sex: Male

DRUGS (3)
  1. CILOSTAZOL [Suspect]
     Indication: BRADYCARDIA
     Dosage: 200 MG ORAL
     Route: 048
     Dates: start: 20051031, end: 20051128
  2. ORCIPRENALNE SULFATE [Concomitant]
  3. DICLOFENAC SODIUM [Concomitant]

REACTIONS (1)
  - GRANULOCYTOPENIA [None]
